FAERS Safety Report 16901553 (Version 1)
Quarter: 2019Q4

REPORT INFORMATION
  Report Type: Spontaneous
  Country: US (occurrence: US)
  Receive Date: 20191010
  Receipt Date: 20191010
  Transmission Date: 20200122
  Serious: Yes (Other)
  Sender: FDA-Public Use
  Company Number: US-LUPIN PHARMACEUTICALS INC.-2019-06456

PATIENT
  Age: 76 Year
  Sex: Male
  Weight: 122 kg

DRUGS (1)
  1. RANOLAZINE EXTENDED RELEASE TABLET 500 MG [Suspect]
     Active Substance: RANOLAZINE
     Indication: ANGINA PECTORIS
     Dosage: 500 MILLIGRAM, BID, 500MG IN THE AM AND 500MG IN THE PM
     Route: 048
     Dates: start: 20190904

REACTIONS (3)
  - Hyperhidrosis [Not Recovered/Not Resolved]
  - Drug ineffective [Unknown]
  - Dyspnoea [Not Recovered/Not Resolved]

NARRATIVE: CASE EVENT DATE: 20190904
